FAERS Safety Report 9515197 (Version 2)
Quarter: 2013Q3

REPORT INFORMATION
  Report Type: Report from Study
  Country: KR (occurrence: KR)
  Receive Date: 20130911
  Receipt Date: 20130911
  Transmission Date: 20140515
  Serious: Yes (Hospitalization, Other)
  Sender: FDA-Public Use
  Company Number: KR-SANOFI-AVENTIS-2013SA064624

PATIENT
  Age: 71 Year
  Sex: Male
  Weight: 60 kg

DRUGS (7)
  1. LANTUS [Suspect]
     Indication: DIABETES MELLITUS
     Dosage: DOSE:36 UNIT(S)
     Route: 058
     Dates: start: 20130524, end: 20130624
  2. LANTUS [Suspect]
     Indication: DIABETES MELLITUS
     Route: 058
     Dates: start: 20130625, end: 20130625
  3. LANTUS [Suspect]
     Indication: DIABETES MELLITUS
     Dosage: DOSE:42 UNIT(S)
     Route: 058
  4. LANTUS [Suspect]
     Indication: DIABETES MELLITUS
     Dosage: DOSE:32 UNIT(S)
     Route: 058
  5. LANTUS [Suspect]
     Indication: DIABETES MELLITUS
     Route: 058
     Dates: start: 20130626
  6. NOVONORM [Concomitant]
     Indication: DIABETES MELLITUS
     Route: 048
     Dates: start: 20130524
  7. GLUPA [Concomitant]
     Indication: DIABETES MELLITUS
     Route: 048
     Dates: start: 20130524

REACTIONS (6)
  - Haemorrhage [Unknown]
  - Hyperglycaemia [Not Recovered/Not Resolved]
  - Vision blurred [Recovered/Resolved]
  - Thirst [Recovered/Resolved]
  - Polyuria [Recovered/Resolved]
  - Overdose [Unknown]
